FAERS Safety Report 8152529-0 (Version None)
Quarter: 2012Q1

REPORT INFORMATION
  Report Type: 
  Country: None (occurrence: None)
  Receive Date: 20120221
  Receipt Date: 20120209
  Transmission Date: 20120608
  Serious: Yes (Hospitalization)
  Sender: FDA-Public Use
  Company Number: KR-PFIZER INC-2011180246

PATIENT
  Age: 40 Year
  Sex: Male
  Weight: 60.6 kg

DRUGS (6)
  1. TAMSULOSIN [Concomitant]
     Indication: DYSURIA
     Dosage: UNK
     Dates: start: 20110608
  2. MAGNESIUM OXIDE [Concomitant]
     Indication: CONSTIPATION
     Dosage: UNK
     Dates: start: 20110511
  3. CRIZOTINIB [Suspect]
     Indication: NON-SMALL CELL LUNG CANCER
     Dosage: 250 MG, 2X/DAY
     Route: 048
     Dates: start: 20110518, end: 20110802
  4. OXYCODONE HYDROCHLORIDE [Concomitant]
     Indication: CHEST PAIN
     Dosage: UNK
     Dates: start: 20110503, end: 20110807
  5. OXCARBAZEPINE [Suspect]
     Indication: CONVULSION PROPHYLAXIS
     Dosage: 450 MG, 2X/DAY
     Route: 048
     Dates: start: 20110208, end: 20110804
  6. MYPOL [Concomitant]
     Indication: CHEST PAIN
     Dosage: UNK
     Dates: start: 20110503

REACTIONS (1)
  - HYPONATRAEMIA [None]
